FAERS Safety Report 18771925 (Version 1)
Quarter: 2021Q1

REPORT INFORMATION
  Report Type: Spontaneous
  Country: US (occurrence: US)
  Receive Date: 20210121
  Receipt Date: 20210121
  Transmission Date: 20210419
  Serious: No
  Sender: FDA-Public Use
  Company Number: US-MYLANLABS-2021M1003144

PATIENT
  Sex: Female

DRUGS (16)
  1. BENADRYL [Suspect]
     Active Substance: DIPHENHYDRAMINE HYDROCHLORIDE
     Indication: DIZZINESS
  2. EPINEPHRINE. [Suspect]
     Active Substance: EPINEPHRINE
     Indication: CHEST DISCOMFORT
     Dosage: UNK
     Route: 065
     Dates: start: 20201231
  3. BENADRYL [Suspect]
     Active Substance: DIPHENHYDRAMINE HYDROCHLORIDE
     Indication: SCRATCH
  4. PEPCID [Suspect]
     Active Substance: FAMOTIDINE
     Indication: DYSPHONIA
  5. EPINEPHRINE. [Suspect]
     Active Substance: EPINEPHRINE
     Indication: SCRATCH
  6. EPINEPHRINE. [Suspect]
     Active Substance: EPINEPHRINE
     Indication: DIZZINESS
  7. BENADRYL [Suspect]
     Active Substance: DIPHENHYDRAMINE HYDROCHLORIDE
     Indication: DYSPHONIA
  8. PEPCID [Suspect]
     Active Substance: FAMOTIDINE
     Indication: CHEST DISCOMFORT
     Dosage: UNK
     Route: 065
     Dates: start: 20201231
  9. PEPCID [Suspect]
     Active Substance: FAMOTIDINE
     Indication: DIZZINESS
  10. SOLU?MEDROL [Suspect]
     Active Substance: METHYLPREDNISOLONE SODIUM SUCCINATE
     Indication: DIZZINESS
  11. SOLU?MEDROL [Suspect]
     Active Substance: METHYLPREDNISOLONE SODIUM SUCCINATE
     Indication: SCRATCH
  12. EPINEPHRINE. [Suspect]
     Active Substance: EPINEPHRINE
     Indication: DYSPHONIA
  13. SOLU?MEDROL [Suspect]
     Active Substance: METHYLPREDNISOLONE SODIUM SUCCINATE
     Indication: DYSPHONIA
  14. SOLU?MEDROL [Suspect]
     Active Substance: METHYLPREDNISOLONE SODIUM SUCCINATE
     Indication: CHEST DISCOMFORT
     Dosage: UNK
     Route: 065
     Dates: start: 20201231
  15. BENADRYL [Suspect]
     Active Substance: DIPHENHYDRAMINE HYDROCHLORIDE
     Indication: CHEST DISCOMFORT
     Dosage: UNK
     Route: 065
     Dates: start: 20201231
  16. PEPCID [Suspect]
     Active Substance: FAMOTIDINE
     Indication: SCRATCH

REACTIONS (7)
  - Anxiety [Not Recovered/Not Resolved]
  - Disturbance in attention [Not Recovered/Not Resolved]
  - Pruritus [Recovered/Resolved]
  - Tremor [Not Recovered/Not Resolved]
  - Restlessness [Not Recovered/Not Resolved]
  - Insomnia [Not Recovered/Not Resolved]
  - Rash [Recovered/Resolved]
